FAERS Safety Report 7623546 (Version 5)
Quarter: 2013Q3

REPORT INFORMATION
  Report Type: Report from Study
  Country: DE (occurrence: DE)
  Receive Date: 20101011
  Receipt Date: 20130708
  Transmission Date: 20140515
  Serious: Yes (Hospitalization)
  Sender: FDA-Public Use
  Company Number: DE-ROCHE-729910

PATIENT
  Age: 56 Year
  Sex: Female
  Weight: 49.5 kg

DRUGS (4)
  1. BEVACIZUMAB [Suspect]
     Indication: BREAST CANCER
     Dosage: TOTAL DOSE: 742.5MG. FORM: VIALS. LAST DOSE PRIOR TO SAE: 25 NOV 2010
     Route: 042
     Dates: start: 20100923
  2. TRASTUZUMAB [Suspect]
     Indication: BREAST CANCER
     Dosage: TOTAL DOSE: 297MG. FORM: VIALS. LAST DOSE PRIOR TO SAE: 25 NOV 2010
     Route: 042
     Dates: start: 20100923
  3. DOCETAXEL [Suspect]
     Indication: BREAST CANCER
     Dosage: TOTAL DOSE: 112.5MG. FORM: VIALS. LAST DOSE PRIOR TO SAE: 25 NOV 2010
     Route: 042
     Dates: start: 20100923
  4. CARBOPLATIN [Suspect]
     Indication: BREAST CANCER
     Dosage: DOSE LEVEL: 6 AUC. FORM: VIALS. LAST DOSE PRIOR TO SAE: 25 NOV 2010
     Route: 042
     Dates: start: 20100923

REACTIONS (2)
  - Vertigo [Recovered/Resolved]
  - Febrile neutropenia [Recovered/Resolved]
